FAERS Safety Report 19454501 (Version 1)
Quarter: 2021Q2

REPORT INFORMATION
  Report Type: Spontaneous
  Country: NL (occurrence: NL)
  Receive Date: 20210623
  Receipt Date: 20210623
  Transmission Date: 20210717
  Serious: Yes (Other)
  Sender: FDA-Public Use
  Company Number: NL-ALLERGAN-2123602US

PATIENT
  Sex: Female
  Weight: 50 kg

DRUGS (14)
  1. BISACODYL ZETPIL [Concomitant]
  2. MICONAZOL [Concomitant]
     Active Substance: MICONAZOLE NITRATE
  3. MIDAZOLAM INFVLST [Concomitant]
  4. DORMICUM [Concomitant]
  5. VALPROINEZUUR MSR [Concomitant]
  6. VENLAFAXINE [Concomitant]
     Active Substance: VENLAFAXINE HYDROCHLORIDE
  7. SIRDALUD MR [Concomitant]
     Active Substance: TIZANIDINE
  8. VENLAFAXINE [Concomitant]
     Active Substance: VENLAFAXINE HYDROCHLORIDE
  9. BOTOX [Suspect]
     Active Substance: ONABOTULINUMTOXINA
     Indication: PRODUCT USED FOR UNKNOWN INDICATION
     Dosage: UNK UNK, SINGLE
     Dates: start: 20210319, end: 20210319
  10. LIVOCAB NEUSSPRAY [Concomitant]
  11. BIOTENE ORAL BALANCE [Concomitant]
     Active Substance: DEVICE\XYLITOL
  12. PARACETAMOL [Concomitant]
     Active Substance: ACETAMINOPHEN
  13. CALCI CHEW D3 [Concomitant]
     Active Substance: CALCIUM CARBONATE\CHOLECALCIFEROL
  14. LORAZEPAM. [Concomitant]
     Active Substance: LORAZEPAM

REACTIONS (3)
  - Dysphagia [Recovered/Resolved]
  - Muscular weakness [Recovered/Resolved]
  - Somnolence [Recovered/Resolved]

NARRATIVE: CASE EVENT DATE: 20210405
